FAERS Safety Report 11240018 (Version 1)
Quarter: 2015Q3

REPORT INFORMATION
  Report Type: Spontaneous
  Country: US (occurrence: None)
  Receive Date: 20150701
  Receipt Date: 20150701
  Transmission Date: 20151125
  Serious: Yes (Other)
  Sender: FDA-Public Use
  Company Number: None

PATIENT
  Age: 73 Year
  Sex: Female
  Weight: 52.62 kg

DRUGS (13)
  1. FENOFILRATE [Concomitant]
  2. CALCIUM [Concomitant]
     Active Substance: CALCIUM
  3. OCUVITE OVER 50 [Concomitant]
  4. ASMANEX [Concomitant]
     Active Substance: MOMETASONE FUROATE
  5. ARTIFICIAL TEARS [Concomitant]
     Active Substance: GLYCERIN\HYPROMELLOSES\POLYETHYLENE GLYCOL 400
  6. PROAIR HFA [Concomitant]
     Active Substance: ALBUTEROL SULFATE
  7. ZIPRASIDONE. [Suspect]
     Active Substance: ZIPRASIDONE
     Indication: BIPOLAR DISORDER
     Dosage: 40 MG?1 PILL MORNING?1 PILL EVENING?TWICE DAILY?BY MOUTH
     Route: 048
     Dates: end: 20150515
  8. VITAMIN D [Concomitant]
     Active Substance: CHOLECALCIFEROL
  9. FISH OIL [Concomitant]
     Active Substance: FISH OIL
  10. ZYRTEC [Concomitant]
     Active Substance: CETIRIZINE HYDROCHLORIDE
  11. FLONASE [Concomitant]
     Active Substance: FLUTICASONE PROPIONATE
  12. CENTRUM-WOMAN OVER 50 [Concomitant]
  13. FLAXSEED [Concomitant]
     Active Substance: FLAX SEED

REACTIONS (5)
  - Product quality issue [None]
  - Feeling abnormal [None]
  - Headache [None]
  - Fatigue [None]
  - Heart rate abnormal [None]

NARRATIVE: CASE EVENT DATE: 201504
